FAERS Safety Report 9338996 (Version 1)
Quarter: 2013Q2

REPORT INFORMATION
  Report Type: Spontaneous
  Country: US (occurrence: US)
  Receive Date: 20130610
  Receipt Date: 20130610
  Transmission Date: 20140414
  Serious: Yes (Hospitalization, Other)
  Sender: FDA-Public Use
  Company Number: US-ELI_LILLY_AND_COMPANY-US201306001299

PATIENT
  Sex: Female

DRUGS (8)
  1. HUMALOG LISPRO [Suspect]
     Indication: TYPE 1 DIABETES MELLITUS
     Dosage: UNK, PRN
     Route: 058
  2. METOPROLOL [Concomitant]
     Indication: CARDIAC DISORDER
  3. LISINOPRIL [Concomitant]
  4. PLAVIX [Concomitant]
  5. ASPIRIN [Concomitant]
     Dosage: UNK, QD
  6. TRAZODONE [Concomitant]
     Indication: SLEEP DISORDER
  7. MIRTAZAPINE [Concomitant]
  8. PHENOBARBITAL [Concomitant]
     Indication: CONVULSION
     Dosage: 120 MG, UNK

REACTIONS (3)
  - Ketoacidosis [Unknown]
  - Blood glucose decreased [Unknown]
  - Upper limb fracture [Unknown]
